FAERS Safety Report 9238516 (Version 2)
Quarter: 2013Q2

REPORT INFORMATION
  Report Type: Spontaneous
  Country: US (occurrence: US)
  Receive Date: 20130418
  Receipt Date: 20130513
  Transmission Date: 20140414
  Serious: No
  Sender: FDA-Public Use
  Company Number: US-BAYER-2013-046801

PATIENT
  Age: 37 Year
  Sex: Female
  Weight: 128.35 kg

DRUGS (3)
  1. MIRENA [Suspect]
     Indication: CONTRACEPTION
     Dosage: 20 MCG/24HR, CONT
     Route: 015
     Dates: start: 20130404, end: 20130405
  2. MIRENA [Suspect]
     Indication: CONTRACEPTION
     Dosage: 20 MCG/24HR, CONT
     Route: 015
     Dates: start: 20130410
  3. LORATADINE [Concomitant]
     Indication: SEASONAL ALLERGY
     Dosage: 10 MG, UNK
     Dates: start: 2011

REACTIONS (3)
  - Procedural pain [Recovered/Resolved]
  - Device deployment issue [None]
  - Device deployment issue [None]
